FAERS Safety Report 4923294-2 (Version None)
Quarter: 2006Q1

REPORT INFORMATION
  Report Type: 
  Country: None (occurrence: None)
  Receive Date: 20060223
  Receipt Date: 20060223
  Transmission Date: 20060701
  Serious: Yes (Hospitalization)
  Sender: FDA-Public Use
  Company Number: None

PATIENT
  Sex: Male

DRUGS (3)
  1. WARFARIN  5 MG [Suspect]
     Indication: ATRIAL FIBRILLATION
     Dosage: 2.5MG WED AND SAT/5MG REST DAILY PO
     Route: 048
  2. ATENOLOL [Concomitant]
  3. LISINOPRIL [Concomitant]

REACTIONS (2)
  - HAEMATEMESIS [None]
  - RECTAL HAEMORRHAGE [None]
